FAERS Safety Report 8105264-9 (Version None)
Quarter: 2012Q1

REPORT INFORMATION
  Report Type: 
  Country: None (occurrence: None)
  Receive Date: 20120201
  Receipt Date: 20120130
  Transmission Date: 20120608
  Serious: No
  Sender: FDA-Public Use
  Company Number: US-BAYER-2012-010053

PATIENT
  Age: 20 Year
  Sex: Female

DRUGS (2)
  1. AVELOX [Suspect]
     Indication: TONSILLITIS
     Dosage: UNK
     Route: 048
     Dates: start: 20120124
  2. LOESTRIN 1.5/30 [Concomitant]

REACTIONS (2)
  - DIARRHOEA [None]
  - VOMITING PROJECTILE [None]
